FAERS Safety Report 13791046 (Version 1)
Quarter: 2017Q3

REPORT INFORMATION
  Report Type: Spontaneous
  Country: GR (occurrence: GR)
  Receive Date: 20170725
  Receipt Date: 20170725
  Transmission Date: 20171127
  Serious: Yes (Other)
  Sender: FDA-Public Use
  Company Number: GR-PFIZER INC-2017316953

PATIENT
  Sex: Female

DRUGS (6)
  1. XANAX [Suspect]
     Active Substance: ALPRAZOLAM
     Dosage: 0.5 MG, 3X/DAY (HALF A TABLET)
  2. XANAX [Suspect]
     Active Substance: ALPRAZOLAM
     Dosage: ANOTHER 1/4 AT NOON
  3. MEDROL [Suspect]
     Active Substance: METHYLPREDNISOLONE
     Indication: RASH
  4. MEDROL [Suspect]
     Active Substance: METHYLPREDNISOLONE
     Indication: HYPERSENSITIVITY VASCULITIS
  5. XANAX [Suspect]
     Active Substance: ALPRAZOLAM
     Dosage: 1/4 IN THE MORNING
  6. SEROPRAM [Suspect]
     Active Substance: CITALOPRAM HYDROBROMIDE

REACTIONS (6)
  - Hepatic steatosis [Unknown]
  - Anxiety [Unknown]
  - Glaucoma [Unknown]
  - Drug dependence [Unknown]
  - Hepatic enzyme increased [Unknown]
  - Muscle spasms [Unknown]
